FAERS Safety Report 6595162-4 (Version None)
Quarter: 2010Q1

REPORT INFORMATION
  Report Type: 
  Country: None (occurrence: None)
  Receive Date: 20100222
  Receipt Date: 20100216
  Transmission Date: 20100710
  Serious: Yes (Hospitalization)
  Sender: FDA-Public Use
  Company Number: FR-MERCK-1002FRA00070

PATIENT
  Age: 56 Year
  Sex: Male

DRUGS (20)
  1. PRIMAXIN [Suspect]
     Indication: PSEUDOMONAS INFECTION
     Route: 042
     Dates: start: 20080718
  2. ROCEPHIN [Suspect]
     Route: 042
     Dates: start: 20080629, end: 20080702
  3. IZILOX [Suspect]
     Route: 051
     Dates: start: 20080629, end: 20080702
  4. ZECLAR [Suspect]
     Route: 042
     Dates: start: 20080629, end: 20080714
  5. PERFALGAN [Suspect]
     Route: 042
     Dates: start: 20080629, end: 20080717
  6. CIFLOX (CIPROFLOXACIN HYDROCHLORIDE (+) HYDROCORTISONE) [Suspect]
     Route: 042
     Dates: start: 20080702, end: 20080704
  7. LEVOFLOXACIN [Suspect]
     Route: 042
     Dates: start: 20080703
  8. LOVENOX [Suspect]
     Route: 058
     Dates: start: 20080705
  9. TAZOCILLINE [Suspect]
     Route: 042
     Dates: start: 20080707, end: 20080711
  10. AERIUS [Suspect]
     Route: 048
     Dates: start: 20080709
  11. VENOFER [Suspect]
     Route: 048
     Dates: start: 20080711
  12. TPN [Suspect]
     Route: 065
     Dates: start: 20080711
  13. ZYVOXID [Suspect]
     Route: 048
     Dates: start: 20080714
  14. OMEPRAZOLE [Suspect]
     Route: 048
     Dates: start: 20080717
  15. DOLIPRANE [Suspect]
     Route: 048
     Dates: start: 20080718
  16. INNOHEP [Concomitant]
     Route: 042
     Dates: start: 20080629, end: 20080704
  17. SUCRALFATE [Concomitant]
     Route: 048
     Dates: start: 20080630, end: 20080716
  18. SOLU-MEDROL [Concomitant]
     Route: 048
     Dates: start: 20080720
  19. TRIFLUCAN [Concomitant]
     Route: 048
     Dates: start: 20080725
  20. ATARAX (ALPRAZOLAM) [Concomitant]
     Route: 048
     Dates: start: 20080725

REACTIONS (1)
  - CYTOLYTIC HEPATITIS [None]
